FAERS Safety Report 14263211 (Version 2)
Quarter: 2017Q4

REPORT INFORMATION
  Report Type: Report from Study
  Country: PL (occurrence: PL)
  Receive Date: 20171208
  Receipt Date: 20171214
  Transmission Date: 20180321
  Serious: Yes (Other)
  Sender: FDA-Public Use
  Company Number: PL-B.I. PHARMACEUTICALS,INC./RIDGEFIELD-2017-BI-064902

PATIENT
  Age: 57 Year
  Sex: Female

DRUGS (1)
  1. BI 695501 [Suspect]
     Active Substance: ADALIMUMAB-ADBM
     Indication: RHEUMATOID ARTHRITIS
     Route: 065

REACTIONS (1)
  - Deep vein thrombosis [Recovered/Resolved]

NARRATIVE: CASE EVENT DATE: 20160823
